FAERS Safety Report 5048872-4 (Version None)
Quarter: 2006Q3

REPORT INFORMATION
  Report Type: 
  Country: None (occurrence: None)
  Receive Date: 20060712
  Receipt Date: 20050613
  Transmission Date: 20061208
  Serious: Yes (Other)
  Sender: FDA-Public Use
  Company Number: US-GLAXOSMITHKLINE-A0562397A

PATIENT
  Age: 54 Year
  Sex: Female

DRUGS (6)
  1. IMITREX [Suspect]
     Indication: MIGRAINE
     Dosage: 25MG AS REQUIRED
     Route: 048
  2. VANQUISH [Concomitant]
  3. KLONOPIN [Concomitant]
  4. WELLBUTRIN [Concomitant]
  5. PAXIL [Concomitant]
  6. INDERAL LA [Concomitant]

REACTIONS (2)
  - DEAFNESS [None]
  - HEADACHE [None]
